FAERS Safety Report 6434709-5 (Version None)
Quarter: 2009Q4

REPORT INFORMATION
  Report Type: 
  Country: None (occurrence: None)
  Receive Date: 20091109
  Receipt Date: 20091109
  Transmission Date: 20100525
  Serious: Yes (Hospitalization)
  Sender: FDA-Public Use
  Company Number: None

PATIENT
  Age: 82 Year
  Sex: Female
  Weight: 49 kg

DRUGS (2)
  1. LISINOPRIL [Suspect]
     Indication: HYPERTENSION
     Dosage: LISINOPRIL 20 MG DAILY PO YEARS PRIOR TO ADMIT
     Route: 048
  2. LEVOFLOXACIN [Suspect]
     Indication: URINARY TRACT INFECTION
     Dosage: LEVOFLOXACIN DAILY PO
     Route: 048

REACTIONS (2)
  - ANGIOEDEMA [None]
  - URINARY TRACT INFECTION [None]
